FAERS Safety Report 21266499 (Version 1)
Quarter: 2022Q3

REPORT INFORMATION
  Report Type: Spontaneous
  Country: US (occurrence: None)
  Receive Date: 20220826
  Receipt Date: 20220826
  Transmission Date: 20221026
  Serious: Yes (Death)
  Sender: FDA-Public Use
  Company Number: None

PATIENT
  Sex: Male

DRUGS (1)
  1. GRANIX [Suspect]
     Active Substance: TBO-FILGRASTIM
     Indication: Acute myeloid leukaemia
     Dosage: 480MCG ?ONCE DAILY IN THE EVENING BEGINNING ON DAY 8. OF CYCLE FOR 10 DAYS OF A 4-6 WEEK CYCLE (CON
     Route: 058
     Dates: start: 20220316

REACTIONS (1)
  - Disease progression [None]
